FAERS Safety Report 8429615 (Version 4)
Quarter: 2012Q4

REPORT INFORMATION
  Report Type: 
  Country: JP (occurrence: JP)
  Receive Date: 20120227
  Receipt Date: 20121126
  Transmission Date: 20130627
  Serious: Yes (Life-Threatening, Other)
  Sender: FDA-Public Use
  Company Number: JP-RB-037675-12

PATIENT
  Age: 68 Year
  Sex: Female

DRUGS (11)
  1. LEPETAN [Suspect]
     Indication: ANALGESIC THERAPY
     Route: 042
     Dates: start: 20120123, end: 20120123
  2. PENTAGIN [Suspect]
     Indication: ANALGESIC THERAPY
     Route: 042
     Dates: start: 20120123, end: 20120123
  3. URSODEOXYCHOLIC ACID [Concomitant]
     Indication: PRODUCT USED FOR UNKNOWN INDICATION
     Route: 065
     Dates: start: 20111229
  4. LANSOPRAZOLE [Concomitant]
     Indication: PRODUCT USED FOR UNKNOWN INDICATION
     Route: 065
     Dates: start: 20111229
  5. ANTIBIOTIC-RESISTANT LACTIC ACID BACTERIAE [Concomitant]
     Indication: PRODUCT USED FOR UNKNOWN INDICATION
     Route: 065
     Dates: start: 20111229
  6. FERRIC PYROPHOSPHATE [Concomitant]
     Indication: PRODUCT USED FOR UNKNOWN INDICATION
     Route: 065
     Dates: start: 20111229
  7. AMBROXOL HYDROCHLORIDE [Concomitant]
     Indication: PRODUCT USED FOR UNKNOWN INDICATION
     Route: 065
     Dates: start: 20111229
  8. HYDROXYZINE HYDROCHLORIDE [Concomitant]
     Indication: PRODUCT USED FOR UNKNOWN INDICATION
     Route: 065
     Dates: start: 20120123, end: 20120123
  9. AMLODIPINE BESILATE [Concomitant]
     Indication: PRODUCT USED FOR UNKNOWN INDICATION
     Route: 065
     Dates: start: 20120104
  10. ISOTONIC SODIUM CHLORIDE SOLUTION [Concomitant]
     Indication: PRODUCT USED FOR UNKNOWN INDICATION
     Dosage: 4 mL/hr
     Route: 065
  11. HEPARIN AND PREPARATIONS [Concomitant]
     Indication: PRODUCT USED FOR UNKNOWN INDICATION
     Dosage: 4 mL/hr
     Route: 065

REACTIONS (4)
  - Respiratory depression [Recovered/Resolved]
  - Somnolence [Unknown]
  - Cardio-respiratory arrest [Recovered/Resolved]
  - Glossoptosis [Recovered/Resolved]
